FAERS Safety Report 20605776 (Version 1)
Quarter: 2022Q1

REPORT INFORMATION
  Report Type: Spontaneous
  Country: NL (occurrence: NL)
  Receive Date: 20220317
  Receipt Date: 20220317
  Transmission Date: 20220423
  Serious: Yes (Other)
  Sender: FDA-Public Use
  Company Number: None

PATIENT
  Age: 49 Month
  Sex: Male
  Weight: 17 kg

DRUGS (2)
  1. QVAR [Suspect]
     Active Substance: BECLOMETHASONE DIPROPIONATE
     Indication: Lung disorder
     Dosage: 4 DOSAGE FORMS DAILY; 2 TIMES A DAY 2 PUFFS, AEROSOL; THERAPY END DATE: ASKU; BECLOMETASON AEROSOL 1
     Dates: start: 20211104
  2. QVAR [Suspect]
     Active Substance: BECLOMETHASONE DIPROPIONATE
     Indication: Hypersensitivity

REACTIONS (2)
  - Hallucination, visual [Not Recovered/Not Resolved]
  - Nightmare [Not Recovered/Not Resolved]

NARRATIVE: CASE EVENT DATE: 20220210
